FAERS Safety Report 18865604 (Version 1)
Quarter: 2021Q1

REPORT INFORMATION
  Report Type: Not Available
  Country: US (occurrence: US)
  Receive Date: 20210208
  Receipt Date: 20210208
  Transmission Date: 20210420
  Serious: No
  Sender: FDA-Public Use
  Company Number: US-NEUROCRINE BIOSCIENCES INC.-2021NBI00356

PATIENT
  Age: 65 Year
  Sex: Male

DRUGS (5)
  1. PRAVASTATIN. [Concomitant]
     Active Substance: PRAVASTATIN
  2. INGREZZA [Suspect]
     Active Substance: VALBENAZINE
     Indication: TARDIVE DYSKINESIA
     Route: 048
     Dates: start: 20201004
  3. BENZTROPINE. [Concomitant]
     Active Substance: BENZTROPINE
  4. FLUPHENAZINE [Concomitant]
     Active Substance: FLUPHENAZINE
  5. TEMAZEPAM. [Concomitant]
     Active Substance: TEMAZEPAM

REACTIONS (2)
  - Drug ineffective [Unknown]
  - Nervousness [Not Recovered/Not Resolved]
